FAERS Safety Report 17919549 (Version 1)
Quarter: 2020Q2

REPORT INFORMATION
  Report Type: Spontaneous
  Country: US (occurrence: US)
  Receive Date: 20200619
  Receipt Date: 20200619
  Transmission Date: 20200714
  Serious: Yes (Death, Other)
  Sender: FDA-Public Use
  Company Number: US-NAPPMUNDI-USA-2020-0152828

PATIENT
  Age: 56 Year
  Sex: Male

DRUGS (1)
  1. OXYCONTIN [Suspect]
     Active Substance: OXYCODONE HYDROCHLORIDE
     Indication: PRODUCT USED FOR UNKNOWN INDICATION
     Dosage: 40 MG, 3 TABLETS DAILY
     Route: 048
     Dates: start: 2008, end: 20160902

REACTIONS (4)
  - Cerebrovascular accident [Unknown]
  - Opisthotonus [Unknown]
  - Drug dependence [Unknown]
  - Road traffic accident [Fatal]

NARRATIVE: CASE EVENT DATE: 2008
